FAERS Safety Report 18886057 (Version 1)
Quarter: 2021Q1

REPORT INFORMATION
  Report Type: Spontaneous
  Country: US (occurrence: US)
  Receive Date: 20210212
  Receipt Date: 20210212
  Transmission Date: 20210420
  Serious: Yes (Hospitalization)
  Sender: FDA-Public Use
  Company Number: None

PATIENT
  Sex: Male

DRUGS (5)
  1. MYCOPHENOLATE [Suspect]
     Active Substance: MYCOPHENOLIC ACID
     Indication: ORGAN TRANSPLANT
     Route: 048
     Dates: start: 20200826
  2. ALFUZOSIN, BUDESONIDE, URSODIOL, POTASSIUM CHLORIDE, PREDNISONE [Concomitant]
  3. METOPROLOL SUCCINATE, METOPROLOL TARTRATE, GABAPENTIN, JAKAFI [Concomitant]
  4. VITAMIN D, CYCLOBENZAPRINE, PANTOPRAZOLE, DOK, MAGNIESUM OXIDE [Concomitant]
  5. CIPROFLOXACIN, SERTRALINE, PROMACTA, VALACYCLOVIR [Concomitant]

REACTIONS (1)
  - Hospitalisation [None]
